FAERS Safety Report 20184568 (Version 1)
Quarter: 2021Q4

REPORT INFORMATION
  Report Type: Spontaneous
  Country: None (occurrence: US)
  Receive Date: 20211214
  Receipt Date: 20211214
  Transmission Date: 20220303
  Serious: No
  Sender: FDA-Public Use
  Company Number: US-Intersect Ent, Inc.-2123017

PATIENT
  Age: 69 Year
  Sex: Male

DRUGS (1)
  1. SINUVA [Suspect]
     Active Substance: MOMETASONE FUROATE
     Indication: Nasal polyps
     Route: 006
     Dates: start: 20210621

REACTIONS (3)
  - Nasal crusting [None]
  - Rhinorrhoea [None]
  - Sinusitis [None]

NARRATIVE: CASE EVENT DATE: 20210729
